FAERS Safety Report 5743985-3 (Version None)
Quarter: 2008Q2

REPORT INFORMATION
  Report Type: 
  Country: None (occurrence: None)
  Receive Date: 20080520
  Receipt Date: 20080515
  Transmission Date: 20081010
  Serious: Yes (Hospitalization)
  Sender: FDA-Public Use
  Company Number: FR-AVENTIS-200811787FR

PATIENT
  Sex: Female

DRUGS (1)
  1. RIFADIN [Suspect]
     Route: 061
     Dates: start: 20060101, end: 20060101

REACTIONS (2)
  - BREAST PROSTHESIS REMOVAL [None]
  - DRUG INEFFECTIVE FOR UNAPPROVED INDICATION [None]
